FAERS Safety Report 5230316-0 (Version None)
Quarter: 2007Q1

REPORT INFORMATION
  Report Type: 
  Country: None (occurrence: None)
  Receive Date: 20070201
  Receipt Date: 20070127
  Transmission Date: 20070707
  Serious: Yes (Other)
  Sender: FDA-Public Use
  Company Number: 234283

PATIENT
  Age: 74 Year
  Sex: Female

DRUGS (2)
  1. MABTHERA (RITUXIMAB) CONC FOR SOLUTION FOR INFUSION [Suspect]
     Indication: CHRONIC LYMPHOCYTIC LEUKAEMIA
     Dates: start: 20060601, end: 20061110
  2. FLUDARABINE PHOSPHATE [Concomitant]

REACTIONS (2)
  - HERPES ZOSTER [None]
  - NEUTROPENIA [None]
